FAERS Safety Report 10078293 (Version 2)
Quarter: 2014Q2

REPORT INFORMATION
  Report Type: Spontaneous
  Country: US (occurrence: US)
  Receive Date: 20140415
  Receipt Date: 20140428
  Transmission Date: 20141212
  Serious: Yes (Life-Threatening, Other)
  Sender: FDA-Public Use
  Company Number: US-ROCHE-1376774

PATIENT
  Age: 52 Year
  Sex: Female

DRUGS (11)
  1. KADCYLA [Suspect]
     Indication: BREAST CANCER METASTATIC
     Dosage: 3.6MG/KG
     Route: 042
     Dates: start: 20140319
  2. TYLENOL [Concomitant]
     Indication: PAIN
     Dosage: AS NEEDED
     Route: 048
  3. DECADRON [Concomitant]
     Dosage: AS INSTRUCTED BY MD
     Route: 048
  4. DOCUSATE [Concomitant]
     Route: 048
  5. FAMOTIDINE [Concomitant]
     Route: 048
  6. KEPPRA [Concomitant]
     Route: 048
     Dates: start: 20140401
  7. LOMOTIL (ATROPINE/DIPHENOXYLATE) [Concomitant]
     Indication: DIARRHOEA
     Dosage: AS NEEDED
     Route: 048
  8. OMEPRAZOLE [Concomitant]
     Route: 048
  9. OXYCODONE [Concomitant]
     Indication: PAIN
     Dosage: AS NEEDED
     Route: 048
  10. SENNA [Concomitant]
     Route: 065
  11. ZOFRAN [Concomitant]
     Dosage: AS NEEDED
     Route: 042

REACTIONS (3)
  - Intracranial tumour haemorrhage [Recovering/Resolving]
  - Hemiplegia [Recovering/Resolving]
  - Cerebral haemorrhage [Unknown]
